FAERS Safety Report 7374464-8 (Version None)
Quarter: 2011Q1

REPORT INFORMATION
  Report Type: 
  Country: None (occurrence: None)
  Receive Date: 20110315
  Receipt Date: 20110304
  Transmission Date: 20110831
  Serious: Yes (Death, Hospitalization)
  Sender: FDA-Public Use
  Company Number: 2009AL004466

PATIENT
  Age: 10 Day
  Sex: Male

DRUGS (1)
  1. FLUOXETINE [Suspect]
     Indication: DRUG EXPOSURE DURING PREGNANCY
     Dosage: 20 MG, QD, TRMA
     Route: 062

REACTIONS (9)
  - NEONATAL PNEUMONIA [None]
  - NEONATAL ANOXIA [None]
  - JAUNDICE NEONATAL [None]
  - CEREBRAL DISORDER [None]
  - MATERNAL DRUGS AFFECTING FOETUS [None]
  - PREMATURE BABY [None]
  - DEATH NEONATAL [None]
  - PERICARDIAL EFFUSION [None]
  - TREMOR [None]
